FAERS Safety Report 8995139 (Version 1)
Quarter: 2012Q4

REPORT INFORMATION
  Report Type: Spontaneous
  Country: US (occurrence: None)
  Receive Date: 20121228
  Receipt Date: 20121228
  Transmission Date: 20130627
  Serious: Yes (Hospitalization)
  Sender: FDA-Public Use
  Company Number: None

PATIENT
  Age: 61 Year
  Sex: Male
  Weight: 78.2 kg

DRUGS (1)
  1. TIOTROPIUM [Suspect]
     Indication: OGILVIE^S SYNDROME
     Route: 055
     Dates: start: 20120927, end: 20120930

REACTIONS (1)
  - Colonic pseudo-obstruction [None]
